FAERS Safety Report 9147971 (Version 2)
Quarter: 2013Q2

REPORT INFORMATION
  Report Type: Spontaneous
  Country: US (occurrence: US)
  Receive Date: 20130307
  Receipt Date: 20130430
  Transmission Date: 20140414
  Serious: No
  Sender: FDA-Public Use
  Company Number: US-009507513-1303USA002421

PATIENT
  Age: 38 Year
  Sex: Female

DRUGS (1)
  1. IMPLANON [Suspect]
     Dosage: UNK
     Route: 059
     Dates: start: 20130228, end: 201303

REACTIONS (4)
  - Device expulsion [Unknown]
  - No adverse event [Unknown]
  - Device dislocation [Unknown]
  - Medical device complication [Unknown]
